FAERS Safety Report 24976301 (Version 1)
Quarter: 2025Q1

REPORT INFORMATION
  Report Type: Report from Study
  Country: TW (occurrence: TW)
  Receive Date: 20250217
  Receipt Date: 20250217
  Transmission Date: 20250409
  Serious: Yes (Other)
  Sender: TAKEDA
  Company Number: TW-TAKEDA-2025TUS015828

PATIENT
  Sex: Female

DRUGS (1)
  1. VEDOLIZUMAB [Suspect]
     Active Substance: VEDOLIZUMAB
     Indication: Crohn^s disease
     Dates: start: 20231205, end: 20250212

REACTIONS (3)
  - Crohn^s disease [Not Recovered/Not Resolved]
  - Large intestinal stenosis [Not Recovered/Not Resolved]
  - Drug effect less than expected [Not Recovered/Not Resolved]
